FAERS Safety Report 5642160-0 (Version None)
Quarter: 2008Q1

REPORT INFORMATION
  Report Type: 
  Country: None (occurrence: None)
  Receive Date: 20080131
  Receipt Date: 20071012
  Transmission Date: 20080703
  Serious: No
  Sender: FDA-Public Use
  Company Number: 2006PV023632

PATIENT
  Age: 66 Year
  Sex: Female
  Weight: 89.8 kg

DRUGS (12)
  1. EXENATIDE            (EXENATIDE) PEN,DISPOSABLE [Suspect]
     Indication: TYPE 2 DIABETES MELLITUS
     Dosage: SEE IMAGE
     Route: 058
     Dates: start: 20060829, end: 20060901
  2. EXENATIDE            (EXENATIDE) PEN,DISPOSABLE [Suspect]
     Indication: TYPE 2 DIABETES MELLITUS
     Dosage: SEE IMAGE
     Route: 058
     Dates: start: 20060901, end: 20060901
  3. EXENATIDE            (EXENATIDE) PEN,DISPOSABLE [Suspect]
     Indication: TYPE 2 DIABETES MELLITUS
     Dosage: SEE IMAGE
     Route: 058
     Dates: end: 20070901
  4. EXENATIDE            (EXENATIDE) PEN,DISPOSABLE [Suspect]
     Indication: TYPE 2 DIABETES MELLITUS
     Dosage: SEE IMAGE
     Route: 058
     Dates: start: 20060901
  5. EXENATIDE            (EXENATIDE) PEN,DISPOSABLE [Suspect]
     Indication: TYPE 2 DIABETES MELLITUS
     Dosage: SEE IMAGE
     Route: 058
     Dates: start: 20071012
  6. GLUCOTROL XL TABLET [Concomitant]
  7. ACTOS [Concomitant]
  8. NEURONTIN  ALTERNATIVE FORM [Concomitant]
  9. EPIDURAL  STEROID INJECTIONS [Concomitant]
  10. STEROID   INJECTIONS [Concomitant]
  11. METFORMIN HCL [Concomitant]
  12. PROTONIX [Concomitant]

REACTIONS (6)
  - ABDOMINAL DISTENSION [None]
  - ANOREXIA [None]
  - BLOOD GLUCOSE INCREASED [None]
  - HEADACHE [None]
  - NAUSEA [None]
  - WEIGHT DECREASED [None]
